FAERS Safety Report 4665143-6 (Version None)
Quarter: 2005Q2

REPORT INFORMATION
  Report Type: 
  Country: None (occurrence: None)
  Receive Date: 20050517
  Receipt Date: 20050503
  Transmission Date: 20051028
  Serious: Yes (Life-Threatening)
  Sender: FDA-Public Use
  Company Number: GBS041015817

PATIENT
  Age: 13 Year
  Sex: Male
  Weight: 58 kg

DRUGS (1)
  1. STRATTERA [Suspect]
     Indication: ATTENTION DEFICIT/HYPERACTIVITY DISORDER
     Dosage: 78 MG DAY
     Dates: start: 20040709, end: 20041012

REACTIONS (13)
  - BLOOD ALKALINE PHOSPHATASE INCREASED [None]
  - BLOOD CREATINE PHOSPHOKINASE INCREASED [None]
  - FALL [None]
  - FATIGUE [None]
  - HEART RATE INCREASED [None]
  - HYPOTENSION [None]
  - IRRITABILITY [None]
  - LOSS OF CONSCIOUSNESS [None]
  - RESPIRATORY RATE DECREASED [None]
  - RESTLESSNESS [None]
  - SLEEP DISORDER [None]
  - SYNCOPE [None]
  - WEIGHT DECREASED [None]
